FAERS Safety Report 25613392 (Version 1)
Quarter: 2025Q3

REPORT INFORMATION
  Report Type: Report from Study
  Country: US (occurrence: US)
  Receive Date: 20250728
  Receipt Date: 20250728
  Transmission Date: 20251020
  Serious: Yes (Other)
  Sender: ROCHE
  Company Number: US-ROCHE-10000344276

PATIENT
  Age: 36 Year
  Sex: Female
  Weight: 91.17 kg

DRUGS (9)
  1. ACTEMRA [Suspect]
     Active Substance: TOCILIZUMAB
     Indication: Keratitis interstitial
     Dosage: INJECT THE CONTENTS OF ONE DEVICE UNDER THE SKIN ONCE WEEKLY (EVERY 7 DAYS) . KEEP REFRIGERATED.
     Route: 058
  2. ACTEMRA [Suspect]
     Active Substance: TOCILIZUMAB
     Indication: Uveitis
     Dosage: INJECT THE CONTENTS OF ONE DEVICE UNDER THE SKIN ONCE WEEKLY (EVERY 7 DAYS) . KEEP REFRIGERATED.
     Route: 058
     Dates: start: 20190314
  3. ACETAZOLAMIDE [Concomitant]
     Active Substance: ACETAZOLAMIDE
     Route: 048
  4. PREDNISOLONE ACETATE [Concomitant]
     Active Substance: PREDNISOLONE ACETATE
     Indication: Uveitis
     Dates: start: 20191010
  5. CALCIUM [Concomitant]
     Active Substance: CALCIUM
  6. HYDROXYZINE HYDROCHLORIDE [Concomitant]
     Active Substance: HYDROXYZINE HYDROCHLORIDE
     Route: 048
     Dates: start: 20211120
  7. MUPIROCIN [Concomitant]
     Active Substance: MUPIROCIN
     Dates: start: 20190907
  8. VALIUM [Concomitant]
     Active Substance: DIAZEPAM
     Route: 048
     Dates: start: 20250317
  9. WELLBUTRIN SR [Concomitant]
     Active Substance: BUPROPION HYDROCHLORIDE
     Route: 048
     Dates: start: 20240219

REACTIONS (17)
  - Off label use [Unknown]
  - Cogan^s syndrome [Unknown]
  - Arthralgia [Unknown]
  - Meningitis aseptic [Unknown]
  - Deafness neurosensory [Unknown]
  - Diarrhoea [Unknown]
  - Dysuria [Unknown]
  - Lactase deficiency [Unknown]
  - Mean cell volume decreased [Unknown]
  - Papilloedema [Unknown]
  - Pernicious anaemia [Unknown]
  - Idiopathic intracranial hypertension [Unknown]
  - Thrombocytosis [Unknown]
  - Toothache [Unknown]
  - Vertigo [Unknown]
  - Upper respiratory tract infection [Unknown]
  - Dysmenorrhoea [Unknown]
